FAERS Safety Report 16248401 (Version 2)
Quarter: 2020Q2

REPORT INFORMATION
  Report Type: Spontaneous
  Country: US (occurrence: US)
  Receive Date: 20190429
  Receipt Date: 20200623
  Transmission Date: 20200713
  Serious: No
  Sender: FDA-Public Use
  Company Number: US-TEVA-2018-US-943444

PATIENT
  Age: 48 Year
  Sex: Female

DRUGS (6)
  1. ARIPIPRAZOLE. [Suspect]
     Active Substance: ARIPIPRAZOLE
     Indication: BIPOLAR DISORDER
     Route: 065
  2. BENZATROPINE [Suspect]
     Active Substance: BENZTROPINE
     Indication: TARDIVE DYSKINESIA
     Route: 065
  3. LITHIUM. [Concomitant]
     Active Substance: LITHIUM
     Indication: POST-TRAUMATIC STRESS DISORDER
     Route: 065
  4. AMANTADINE. [Suspect]
     Active Substance: AMANTADINE HYDROCHLORIDE
     Route: 065
  5. ESCITALOPRAM [Concomitant]
     Active Substance: ESCITALOPRAM OXALATE
     Indication: POST-TRAUMATIC STRESS DISORDER
     Route: 065
  6. BUPROPION. [Concomitant]
     Active Substance: BUPROPION
     Indication: POST-TRAUMATIC STRESS DISORDER
     Route: 065

REACTIONS (5)
  - Dyskinesia [Recovering/Resolving]
  - Treatment failure [Unknown]
  - Movement disorder [Recovering/Resolving]
  - Drug intolerance [Unknown]
  - Dyskinesia [Unknown]
